FAERS Safety Report 6013738-X (Version None)
Quarter: 2008Q4

REPORT INFORMATION
  Report Type: 
  Country: None (occurrence: None)
  Receive Date: 20081219
  Receipt Date: 20081209
  Transmission Date: 20090506
  Serious: Yes (Hospitalization)
  Sender: FDA-Public Use
  Company Number: B0545505A

PATIENT
  Age: 35 Year
  Sex: Male
  Weight: 92 kg

DRUGS (2)
  1. MALARONE [Suspect]
     Indication: MALARIA PROPHYLAXIS
     Dosage: 1TAB SINGLE DOSE
     Route: 048
     Dates: start: 20081023, end: 20081023
  2. ATENOLOL [Concomitant]
     Dosage: 50MG UNKNOWN
     Route: 048
     Dates: start: 20040101

REACTIONS (7)
  - ANXIETY [None]
  - CARDIOVASCULAR DISORDER [None]
  - ELECTROCARDIOGRAM QT PROLONGED [None]
  - MALAISE [None]
  - PALPITATIONS [None]
  - PRESYNCOPE [None]
  - SUPRAVENTRICULAR TACHYCARDIA [None]
